FAERS Safety Report 4456411-1 (Version None)
Quarter: 2004Q3

REPORT INFORMATION
  Report Type: 
  Country: None (occurrence: None)
  Receive Date: 20040917
  Receipt Date: 20040903
  Transmission Date: 20050211
  Serious: Yes (Hospitalization)
  Sender: FDA-Public Use
  Company Number: 184389

PATIENT
  Age: 48 Year
  Sex: Female
  Weight: 101.1521 kg

DRUGS (15)
  1. AVONEX [Suspect]
     Indication: MULTIPLE SCLEROSIS
     Dosage: 30 MCG QW; IM
     Route: 030
     Dates: start: 20000101, end: 20030924
  2. AVONEX [Suspect]
     Indication: MULTIPLE SCLEROSIS
     Dosage: 30 MCG QW; IM
     Route: 030
     Dates: start: 20031001, end: 20031008
  3. AVONEX [Suspect]
     Indication: MULTIPLE SCLEROSIS
     Dosage: 30 MCG QW; IM
     Route: 030
     Dates: start: 20031201
  4. SYNTHROID [Concomitant]
  5. PROVIGIL [Concomitant]
  6. XANAX [Concomitant]
  7. DETROL - SLOW RELEASE [Concomitant]
  8. IMODIUM [Concomitant]
  9. MAXAIR [Concomitant]
  10. RHINOCORT [Concomitant]
  11. PAXIL [Concomitant]
  12. CELEXA [Concomitant]
  13. PROZAC [Concomitant]
  14. CELEBREX [Concomitant]
  15. ALLERGY MEDICATIONS [Concomitant]

REACTIONS (12)
  - ASTHMA [None]
  - CHILLS [None]
  - CONDITION AGGRAVATED [None]
  - DIABETES MELLITUS [None]
  - EAR INFECTION [None]
  - MULTIPLE SCLEROSIS [None]
  - ORAL CANDIDIASIS [None]
  - PAIN [None]
  - PANIC ATTACK [None]
  - PHARYNGOLARYNGEAL PAIN [None]
  - STRESS SYMPTOMS [None]
  - VAGINAL MYCOSIS [None]
